FAERS Safety Report 7554765-0 (Version None)
Quarter: 2011Q2

REPORT INFORMATION
  Report Type: 
  Country: None (occurrence: None)
  Receive Date: 20110617
  Receipt Date: 20110613
  Transmission Date: 20111010
  Serious: Yes (Death, Life-Threatening, Hospitalization, Other)
  Sender: FDA-Public Use
  Company Number: JP-CELGENEUS-087-21880-10082960

PATIENT
  Sex: Female

DRUGS (12)
  1. ATARAX [Concomitant]
     Indication: INSOMNIA
     Route: 065
     Dates: start: 20100801
  2. ARIMIDEX [Concomitant]
     Indication: BREAST CANCER
     Dosage: 1 MILLIGRAM
     Route: 048
     Dates: start: 20100208, end: 20100828
  3. CANDESARTAN CILEXETIL [Concomitant]
     Indication: HYPERTENSION
     Dosage: 8 MILLIGRAM
     Route: 048
     Dates: start: 20100121, end: 20100828
  4. CEFDINIR [Concomitant]
     Indication: PYREXIA
     Dosage: 300 MILLIGRAM
     Route: 048
     Dates: start: 20100826, end: 20100828
  5. REVLIMID [Suspect]
     Indication: MULTIPLE MYELOMA
     Dosage: 15 MILLIGRAM
     Route: 048
     Dates: start: 20100820, end: 20100826
  6. MUCOSTA [Concomitant]
     Indication: PROPHYLAXIS
     Dosage: 100 MILLIGRAM
     Route: 048
     Dates: start: 20100826, end: 20100827
  7. MOHRUS TAPE [Concomitant]
     Indication: MULTIPLE MYELOMA
     Dosage: 20 MILLIGRAM
     Route: 062
     Dates: start: 20100826, end: 20100828
  8. DEXAMETHASONE [Suspect]
     Indication: MULTIPLE MYELOMA
     Dosage: 20 MILLIGRAM
     Route: 048
     Dates: start: 20100820, end: 20100823
  9. ASPIRIN [Concomitant]
     Indication: PROPHYLAXIS
     Dosage: 100 MILLIGRAM
     Route: 048
     Dates: start: 20091030, end: 20100828
  10. OMEPRAZOLE [Concomitant]
     Indication: PROPHYLAXIS
     Dosage: 20 MILLIGRAM
     Route: 048
     Dates: start: 20100820, end: 20100826
  11. ATELEC [Concomitant]
     Indication: HYPERTENSION
     Dosage: 10 MILLIGRAM
     Route: 048
     Dates: start: 20091010, end: 20100828
  12. SIMVASTATIN [Concomitant]
     Dosage: 5 MILLIGRAM
     Route: 048
     Dates: start: 20091030, end: 20100828

REACTIONS (13)
  - BACTERAEMIA [None]
  - MALAISE [None]
  - PAIN [None]
  - HEPATIC FAILURE [None]
  - THROMBOCYTOPENIA [None]
  - BLOOD CREATINE PHOSPHOKINASE INCREASED [None]
  - C-REACTIVE PROTEIN INCREASED [None]
  - SHOCK HAEMORRHAGIC [None]
  - HEPATIC NECROSIS [None]
  - VENTRICULAR EXTRASYSTOLES [None]
  - VOMITING [None]
  - PYREXIA [None]
  - NEUTROPENIA [None]
